FAERS Safety Report 17142986 (Version 1)
Quarter: 2019Q4

REPORT INFORMATION
  Report Type: Spontaneous
  Country: US (occurrence: US)
  Receive Date: 20191119
  Receipt Date: 20191119
  Transmission Date: 20200122
  Serious: Yes (Hospitalization, Other)
  Sender: FDA-Public Use
  Company Number: None

PATIENT
  Sex: Male

DRUGS (11)
  1. RAMIPRIL. [Concomitant]
     Active Substance: RAMIPRIL
  2. BISCAODYOL [Concomitant]
  3. TECENTRIQ [Suspect]
     Active Substance: ATEZOLIZUMAB
     Indication: LUNG CARCINOMA CELL TYPE UNSPECIFIED STAGE 0
     Dosage: ?          OTHER FREQUENCY:Q 21 DAYS;?
     Dates: start: 20191119
  4. ALLOPURINOL. [Suspect]
     Active Substance: ALLOPURINOL
  5. ELIQUIS [Concomitant]
     Active Substance: APIXABAN
  6. OLANZAPINE. [Concomitant]
     Active Substance: OLANZAPINE
  7. CARVEDILOL. [Concomitant]
     Active Substance: CARVEDILOL
  8. FUROSEMIDE. [Concomitant]
     Active Substance: FUROSEMIDE
  9. DOK [Concomitant]
     Active Substance: DOCUSATE SODIUM
  10. ATORVASTATIN [Concomitant]
     Active Substance: ATORVASTATIN
  11. BETAMETH VAL [Concomitant]

REACTIONS (4)
  - Nasal dryness [None]
  - Epistaxis [None]
  - Lung neoplasm malignant [None]
  - Back pain [None]
